FAERS Safety Report 14954185 (Version 1)
Quarter: 2018Q2

REPORT INFORMATION
  Report Type: Spontaneous
  Country: US (occurrence: US)
  Receive Date: 20180509
  Receipt Date: 20180509
  Transmission Date: 20180711
  Serious: Yes (Hospitalization)
  Sender: FDA-Public Use
  Company Number: None

PATIENT
  Age: 58 Year
  Sex: Female
  Weight: 77.9 kg

DRUGS (1)
  1. NALOXEGOL OXALATE. [Suspect]
     Active Substance: NALOXEGOL OXALATE
     Dosage: DOSE IS BLINDED. IT^S EITHER PLACEBO, 12.5MG OR 25.5
     Dates: end: 20180424

REACTIONS (13)
  - Ear pain [None]
  - Cough [None]
  - Dysphonia [None]
  - Fatigue [None]
  - Neck pain [None]
  - Diarrhoea [None]
  - Myalgia [None]
  - Condition aggravated [None]
  - Asthenia [None]
  - Vomiting [None]
  - Arrhythmia [None]
  - Febrile neutropenia [None]
  - Hypovolaemia [None]

NARRATIVE: CASE EVENT DATE: 20180430
